FAERS Safety Report 8081737-2 (Version None)
Quarter: 2012Q1

REPORT INFORMATION
  Report Type: 
  Country: None (occurrence: None)
  Receive Date: 20120130
  Receipt Date: 20120124
  Transmission Date: 20120608
  Serious: Yes (Death, Other)
  Sender: FDA-Public Use
  Company Number: AT-ELI_LILLY_AND_COMPANY-AT201201008466

PATIENT

DRUGS (2)
  1. CARBOPLATIN [Concomitant]
     Indication: TRANSITIONAL CELL CARCINOMA
     Dosage: UNK, ON DAY 1, EVERY 3WEEKS
  2. GEMCITABINE HYDROCHLORIDE [Suspect]
     Indication: TRANSITIONAL CELL CARCINOMA
     Dosage: 1000 MG/M2, OVER 30MINS ON DAYS 1 AND 8
     Route: 042

REACTIONS (1)
  - TOXICITY TO VARIOUS AGENTS [None]
